FAERS Safety Report 5511445-0 (Version None)
Quarter: 2007Q4

REPORT INFORMATION
  Report Type: 
  Country: None (occurrence: None)
  Receive Date: 20071109
  Receipt Date: 20071031
  Transmission Date: 20080405
  Serious: Yes (Other)
  Sender: FDA-Public Use
  Company Number: US-ROCHE-461267

PATIENT
  Age: 46 Year
  Sex: Female

DRUGS (9)
  1. PEGASYS [Suspect]
     Dosage: STRENGTH REPORTED AS 180 MCG/0.5 ML.
     Route: 058
     Dates: start: 20060719
  2. COPEGUS [Suspect]
     Dosage: SWITCHED FROM COPEGUS TO RIBAVIRIN (UNKNOWN MANUFACTURER)
     Route: 048
     Dates: start: 20060719
  3. RIBAVIRIN [Suspect]
     Dosage: SWITCHED FROM COPEGUS TO RIBAVIRIN (UNKNOWN MANUFACTURER)
     Route: 048
  4. XANAX [Concomitant]
     Indication: ANXIETY
     Route: 048
     Dates: start: 20040101
  5. SEROQUEL [Concomitant]
     Indication: SLEEP DISORDER THERAPY
     Route: 048
     Dates: start: 20040101
  6. ZOLOFT [Concomitant]
     Indication: DEPRESSION
     Dosage: AT BEDTIME.
  7. PERCOCET [Concomitant]
     Indication: BACK PAIN
  8. NEXIUM [Concomitant]
     Dosage: TAKES 40 MG BID
  9. FAMOTIDINE [Concomitant]

REACTIONS (5)
  - BLOOD THYROID STIMULATING HORMONE DECREASED [None]
  - HYPOTHYROIDISM [None]
  - LOSS OF CONSCIOUSNESS [None]
  - RED BLOOD CELL COUNT DECREASED [None]
  - WHITE BLOOD CELL COUNT INCREASED [None]
